FAERS Safety Report 14573582 (Version 1)
Quarter: 2018Q1

REPORT INFORMATION
  Report Type: Spontaneous
  Country: US (occurrence: US)
  Receive Date: 20180224
  Receipt Date: 20180224
  Transmission Date: 20180509
  Serious: Yes (Life-Threatening, Other)
  Sender: FDA-Public Use
  Company Number: None

PATIENT
  Age: 27 Year
  Sex: Female

DRUGS (3)
  1. TRAMADOL. [Suspect]
     Active Substance: TRAMADOL
     Route: 048
     Dates: start: 20180220, end: 20180224
  2. TIZANIDINE. [Concomitant]
     Active Substance: TIZANIDINE
  3. SERTRALINE [Suspect]
     Active Substance: SERTRALINE HYDROCHLORIDE
     Route: 048
     Dates: start: 20180220, end: 20180224

REACTIONS (2)
  - Serotonin syndrome [None]
  - Pain in extremity [None]

NARRATIVE: CASE EVENT DATE: 20180224
